FAERS Safety Report 14954019 (Version 23)
Quarter: 2021Q2

REPORT INFORMATION
  Report Type: Report from Study
  Country: US (occurrence: DE)
  Receive Date: 20180530
  Receipt Date: 20210630
  Transmission Date: 20210716
  Serious: Yes (Death, Life-Threatening, Hospitalization, Other)
  Sender: FDA-Public Use
  Company Number: US-PFIZER INC-2003041703

PATIENT
  Age: 73 Year
  Sex: Female
  Weight: 60 kg

DRUGS (75)
  1. NORVASC [Suspect]
     Active Substance: AMLODIPINE BESYLATE
     Dosage: 10 MG, UNK
     Route: 048
     Dates: start: 20010703, end: 20010714
  2. FRAGMIN [Suspect]
     Active Substance: DALTEPARIN SODIUM
     Indication: THROMBOSIS PROPHYLAXIS
     Dosage: 2500 IU, EVERY 12 DAYS
     Route: 058
     Dates: start: 20010703, end: 20010714
  3. METFORMIN HCL [Suspect]
     Active Substance: METFORMIN HYDROCHLORIDE
     Indication: CORONARY ARTERY DISEASE
     Dosage: UNK
  4. CIPROFLOXACIN HCL [Suspect]
     Active Substance: CIPROFLOXACIN HYDROCHLORIDE
     Dosage: 500 MG, 2X/DAY
     Route: 048
     Dates: start: 20010620, end: 20010628
  5. LASIX [Suspect]
     Active Substance: FUROSEMIDE
     Dosage: 80 MG, 1X/DAY
     Route: 042
     Dates: start: 20010703
  6. TRANXENE [Suspect]
     Active Substance: CLORAZEPATE DIPOTASSIUM
     Indication: RESTLESSNESS
     Dosage: 10 MG, 1X/DAY
     Route: 048
     Dates: start: 20010710, end: 20010714
  7. DIGOXIN. [Suspect]
     Active Substance: DIGOXIN
     Dosage: UNK
     Route: 048
     Dates: start: 20010703, end: 20010714
  8. AMARYL [Suspect]
     Active Substance: GLIMEPIRIDE
     Dosage: 3 MG, EVERY 18 DAYS
     Route: 048
     Dates: start: 20010616, end: 20010703
  9. CONCOR [Suspect]
     Active Substance: BISOPROLOL FUMARATE
     Indication: CORONARY ARTERY DISEASE
     Dosage: 8 MG, EVERY 29 DAYS
     Route: 048
     Dates: start: 20010616, end: 20010714
  10. LANTUS [Suspect]
     Active Substance: INSULIN GLARGINE
     Indication: DIABETES MELLITUS
     Dosage: 16 IU, QD
     Route: 058
     Dates: start: 20010616, end: 20010629
  11. GLIMEPIRIDE. [Concomitant]
     Active Substance: GLIMEPIRIDE
     Indication: DIABETES MELLITUS
     Dosage: 3 MG, 1X/DAY
     Route: 048
     Dates: start: 20010616, end: 20010703
  12. RAMIPRIL. [Suspect]
     Active Substance: RAMIPRIL
     Dosage: 10 MG, QD
     Route: 048
     Dates: start: 20010616, end: 20010714
  13. ROCEPHIN [Suspect]
     Active Substance: CEFTRIAXONE SODIUM
     Indication: PYREXIA
     Dosage: 1 G, BID
     Route: 042
     Dates: start: 20010629, end: 20010703
  14. DIAZEPAM. [Suspect]
     Active Substance: DIAZEPAM
     Indication: RESTLESSNESS
     Dosage: 15 MG, DAILY
     Route: 048
     Dates: start: 20010616, end: 20010703
  15. ASPIRIN. [Suspect]
     Active Substance: ASPIRIN
     Indication: CORONARY ARTERY DISEASE
     Dosage: 100 MG, QD
     Route: 048
     Dates: start: 20010616, end: 20010714
  16. DIGOXIN. [Suspect]
     Active Substance: DIGOXIN
     Indication: CORONARY ARTERY DISEASE
     Dosage: 0.3 MG, 1X/DAY
     Route: 048
     Dates: start: 20010703, end: 20010714
  17. VAGMYCIN [Suspect]
     Active Substance: AMPHOTERICIN B\TETRACYCLINE
     Indication: PROPHYLAXIS
     Dosage: 200 MG, 1X/DAY
     Route: 048
     Dates: start: 20010703, end: 20010714
  18. METOCLOPRAMIDE HYDROCHLORIDE. [Suspect]
     Active Substance: METOCLOPRAMIDE HYDROCHLORIDE
     Indication: CORONARY ARTERY DISEASE
     Dosage: 7 MG, DAILY
     Route: 048
     Dates: start: 20010704, end: 20010712
  19. METOCLOPRAMIDE HYDROCHLORIDE. [Suspect]
     Active Substance: METOCLOPRAMIDE HYDROCHLORIDE
     Indication: NAUSEA
     Dosage: 75 MG, DAILY
     Route: 048
     Dates: start: 20010704, end: 20010712
  20. ZAROXOLYN [Suspect]
     Active Substance: METOLAZONE
     Dosage: 2 MG, UNK
     Route: 048
     Dates: start: 20010712, end: 20010713
  21. CAPTOPRIL. [Suspect]
     Active Substance: CAPTOPRIL
     Indication: CORONARY ARTERY DISEASE
     Dosage: 1 DF, UNK (1 DF, EVERY 29 DAYS 1MOL/ML)
     Route: 048
     Dates: start: 20010616, end: 20010714
  22. HALDOL [Suspect]
     Active Substance: HALOPERIDOL
     Indication: RESTLESSNESS
     Dosage: 3 GTT, QD
     Route: 048
     Dates: start: 20010713, end: 20010714
  23. HALDOL [Suspect]
     Active Substance: HALOPERIDOL
     Dosage: UNK
     Route: 048
     Dates: start: 20010713, end: 20010713
  24. HALDOL [Suspect]
     Active Substance: HALOPERIDOL
     Dosage: UNK UNK, QD
     Route: 048
     Dates: start: 20010713, end: 20010714
  25. BROMAZEPAM [Concomitant]
     Active Substance: BROMAZEPAM
     Dosage: UNK
     Dates: start: 20010713, end: 20010714
  26. POTASSIUM [Concomitant]
     Active Substance: POTASSIUM
     Indication: ELECTROLYTE IMBALANCE
     Dosage: 1500 MG, UNK
     Route: 048
     Dates: start: 20010703, end: 20010714
  27. SORTIS [Suspect]
     Active Substance: ATORVASTATIN
     Indication: HYPERLIPIDAEMIA
     Dosage: 20 MG, DAILY
     Route: 048
     Dates: start: 20010616, end: 20010703
  28. DECORTIN [Suspect]
     Active Substance: PREDNISONE
     Dosage: 50 MG, UNK
     Route: 065
  29. NOVODIGAL (.BETA.?ACETYLDIGOXIN) [Suspect]
     Active Substance: .BETA.-ACETYLDIGOXIN
     Indication: CORONARY ARTERY DISEASE
     Dosage: 1 DF, DAILY
     Route: 048
     Dates: start: 20010703
  30. CARBIMAZOLE [Suspect]
     Active Substance: CARBIMAZOLE
     Indication: HYPERTHYROIDISM
     Dosage: 20 MG, QD
     Route: 048
     Dates: start: 20010621, end: 20010714
  31. YEAST DRIED [Suspect]
     Active Substance: YEAST
     Dosage: 100 MG, UNK
     Route: 048
  32. INSULIN GLARGINE [Concomitant]
     Active Substance: INSULIN GLARGINE
     Indication: DIABETES MELLITUS
     Dosage: 16 IU, 1X/DAY
     Route: 058
     Dates: start: 20010616, end: 20010629
  33. FRAGMIN [Suspect]
     Active Substance: DALTEPARIN SODIUM
     Dosage: 2500 IU, 1X/DAY
     Route: 058
     Dates: start: 20010703, end: 20010714
  34. CIPROFLOXACIN HCL [Suspect]
     Active Substance: CIPROFLOXACIN HYDROCHLORIDE
     Indication: CHOLECYSTITIS
     Dosage: 500 MG, 1X/DAY
     Route: 048
     Dates: start: 20010620, end: 20010628
  35. LASIX [Suspect]
     Active Substance: FUROSEMIDE
     Indication: HYPERTENSION
     Dosage: 120 MG, DAILY
     Route: 042
     Dates: start: 20010703, end: 20010714
  36. DIAZEPAM. [Suspect]
     Active Substance: DIAZEPAM
     Dosage: 5 MG, UNK
     Route: 048
     Dates: start: 20010616, end: 20010703
  37. VAGMYCIN [Suspect]
     Active Substance: AMPHOTERICIN B\TETRACYCLINE
     Indication: ANTIFUNGAL PROPHYLAXIS
     Dosage: 8 DF, QD
     Route: 048
     Dates: start: 20010703, end: 20010714
  38. EUNERPAN [Suspect]
     Active Substance: MELPERONE HYDROCHLORIDE
     Dosage: 16 ML, QD
     Route: 048
     Dates: start: 20010706, end: 20010712
  39. YEAST DRIED [Suspect]
     Active Substance: YEAST
     Indication: DIARRHOEA
     Dosage: 300 MG, UNK
     Route: 048
     Dates: start: 20010711, end: 20010714
  40. POTASSIUM CHLORIDE. [Suspect]
     Active Substance: POTASSIUM CHLORIDE
     Indication: ELECTROLYTE IMBALANCE
     Dosage: 1500 MG, EVERY 12 HOURS
     Route: 048
     Dates: start: 20010703, end: 20010714
  41. HEPARIN SODIUM. [Concomitant]
     Active Substance: HEPARIN SODIUM
     Dosage: UNK
     Route: 058
     Dates: start: 20010703, end: 20010714
  42. PANTOPRAZOLE SODIUM. [Concomitant]
     Active Substance: PANTOPRAZOLE SODIUM
     Indication: PROPHYLAXIS
     Dosage: 40 MG, QD
     Route: 065
  43. MONO MACK [Suspect]
     Active Substance: ISOSORBIDE MONONITRATE
     Indication: CORONARY ARTERY DISEASE
     Dosage: UNK UNK, QD
     Route: 048
     Dates: start: 20010703, end: 20010714
  44. METFORMIN HCL [Suspect]
     Active Substance: METFORMIN HYDROCHLORIDE
     Dosage: 7 MG, QD
     Route: 048
     Dates: start: 20010616, end: 20010714
  45. METHYLPREDNISOLONE SODIUM SUCCINATE. [Suspect]
     Active Substance: METHYLPREDNISOLONE SODIUM SUCCINATE
     Indication: DYSPNOEA
     Dosage: 50 MG, 1X/DAY
     Route: 042
     Dates: start: 20010703, end: 20010703
  46. VAGMYCIN [Suspect]
     Active Substance: AMPHOTERICIN B\TETRACYCLINE
     Indication: CANDIDA INFECTION
  47. EUNERPAN [Suspect]
     Active Substance: MELPERONE HYDROCHLORIDE
     Indication: RESTLESSNESS
     Dosage: 105 MG, 1X/DAY
     Route: 048
     Dates: start: 20010706, end: 20010712
  48. DECORTIN [Suspect]
     Active Substance: PREDNISONE
     Indication: DYSPNOEA
     Dosage: 50 MG, DAILY (QD)
     Route: 042
     Dates: start: 20010703, end: 20010703
  49. IRENAT [Suspect]
     Active Substance: SODIUM PERCHLORATE
     Indication: HYPERTHYROIDISM
     Dosage: 688 MG
     Route: 048
     Dates: start: 20010618, end: 20010714
  50. ACETYLDIGOXIN [Suspect]
     Active Substance: .ALPHA.-ACETYLDIGOXIN
     Indication: CORONARY ARTERY DISEASE
     Dosage: 1 DF, UNK
     Route: 048
     Dates: start: 20010703
  51. LEXOTANIL [Concomitant]
     Active Substance: BROMAZEPAM
     Indication: RESTLESSNESS
     Dosage: 2 MG, UNK
     Route: 048
     Dates: start: 20010713, end: 20010714
  52. SODIUM PERCHLORATE [Concomitant]
     Active Substance: SODIUM PERCHLORATE
     Indication: HYPERTHYROIDISM
     Dosage: 20 GTT, TID
     Route: 048
     Dates: start: 20010618, end: 20010714
  53. PANTOZOL [Suspect]
     Active Substance: PANTOPRAZOLE SODIUM
     Dosage: 80 MG, QD
     Route: 048
     Dates: start: 20010616
  54. PANTOZOL [Suspect]
     Active Substance: PANTOPRAZOLE SODIUM
     Dosage: 40 MG, QD
     Route: 048
     Dates: start: 20010616, end: 20010714
  55. RAMIPRIL. [Suspect]
     Active Substance: RAMIPRIL
     Indication: CORONARY ARTERY DISEASE
     Dosage: 5 MG, QD
     Route: 048
     Dates: start: 20010616, end: 20010714
  56. CIPROFLOXACIN HCL [Suspect]
     Active Substance: CIPROFLOXACIN HYDROCHLORIDE
     Dosage: 250 MG, 2X/DAY
     Route: 048
     Dates: start: 20010710, end: 20010711
  57. ROCEPHIN [Suspect]
     Active Substance: CEFTRIAXONE SODIUM
     Dosage: 2 G, Q12H
     Route: 042
     Dates: start: 20010629
  58. MOLSIDOMINE [Suspect]
     Active Substance: MOLSIDOMINE
     Indication: CORONARY ARTERY DISEASE
     Dosage: 8 MG, Q12D
     Route: 048
     Dates: start: 20010703, end: 20010714
  59. AMARYL [Suspect]
     Active Substance: GLIMEPIRIDE
     Indication: DIABETES MELLITUS
     Dosage: 3 MG, 1X/DAY
     Route: 048
     Dates: start: 20010616, end: 20010703
  60. CONCOR [Suspect]
     Active Substance: BISOPROLOL FUMARATE
     Dosage: 5 MG, QD
     Route: 048
     Dates: start: 20010714, end: 20010714
  61. PANTOZOL [Suspect]
     Active Substance: PANTOPRAZOLE SODIUM
     Indication: PROPHYLAXIS
     Dosage: 40 MG, QD
     Route: 048
     Dates: start: 20010614, end: 20010714
  62. METFORMIN HCL [Suspect]
     Active Substance: METFORMIN HYDROCHLORIDE
     Indication: DIABETES MELLITUS
     Dosage: 250 MG, QD
     Route: 048
     Dates: start: 20010616, end: 20010714
  63. METHYLPREDNISOLONE SODIUM SUCCINATE. [Suspect]
     Active Substance: METHYLPREDNISOLONE SODIUM SUCCINATE
     Indication: ANTIFUNGAL PROPHYLAXIS
  64. TRANXENE [Suspect]
     Active Substance: CLORAZEPATE DIPOTASSIUM
     Dosage: UNK
     Route: 048
  65. PARACETAMOL [Suspect]
     Active Substance: ACETAMINOPHEN
     Indication: PAIN
     Dosage: 500 MG, 1X/DAY
     Route: 048
     Dates: start: 20010711, end: 20010711
  66. DIGOXIN. [Suspect]
     Active Substance: DIGOXIN
     Dosage: UNK
     Route: 048
     Dates: start: 20010703
  67. ZAROXOLYN [Suspect]
     Active Substance: METOLAZONE
     Indication: HYPERTENSION
     Dosage: 2 MG, QD
     Route: 048
     Dates: start: 20010712, end: 20010713
  68. PERENTEROL [Suspect]
     Active Substance: SACCHAROMYCES CEREVISIAE
     Indication: DIARRHOEA
     Dosage: 300 MG, 1X/DAY
     Route: 048
     Dates: start: 20010711, end: 20010714
  69. NORVASC [Suspect]
     Active Substance: AMLODIPINE BESYLATE
     Indication: CORONARY ARTERY DISEASE
     Dosage: 5 MG, DAILY
     Route: 048
     Dates: start: 20010703, end: 20010714
  70. DIGOXIN. [Suspect]
     Active Substance: DIGOXIN
     Dosage: 0.2 MG, DAILY
     Route: 048
     Dates: start: 20010703, end: 20010714
  71. MOLSIDOMINE [Suspect]
     Active Substance: MOLSIDOMINE
     Indication: NAUSEA
     Dosage: 16 MG, 1X/DAY
     Route: 048
     Dates: start: 20010703, end: 20010714
  72. PLAVIX [Suspect]
     Active Substance: CLOPIDOGREL BISULFATE
     Indication: CORONARY ARTERY DISEASE
     Dosage: 75 MG, 1X/DAY
     Route: 048
     Dates: start: 20010704, end: 20010714
  73. CARBIMAZOLE [Suspect]
     Active Substance: CARBIMAZOLE
     Dosage: 30 MG, QD
     Route: 048
  74. ATORVASTATIN CALCIUM. [Concomitant]
     Active Substance: ATORVASTATIN CALCIUM
     Indication: HYPERLIPIDAEMIA
     Dosage: 20 MG, 1X/DAY
     Route: 048
     Dates: start: 20010616, end: 20010703
  75. BISOPROLOL FUMARATE. [Concomitant]
     Active Substance: BISOPROLOL FUMARATE
     Indication: CORONARY ARTERY DISEASE
     Dosage: 5 MG, QD
     Route: 048
     Dates: start: 20010714

REACTIONS (20)
  - Lung disorder [Fatal]
  - Condition aggravated [Fatal]
  - Pyrexia [Unknown]
  - Pain [Unknown]
  - Blister [Fatal]
  - Cholecystitis [Fatal]
  - Erythema [Fatal]
  - Coronary artery disease [Unknown]
  - Hyperthyroidism [Fatal]
  - Dermatitis exfoliative [Fatal]
  - Respiratory disorder [Fatal]
  - Multiple organ dysfunction syndrome [Fatal]
  - Nausea [Fatal]
  - Diarrhoea [Fatal]
  - Electrolyte imbalance [Fatal]
  - Restlessness [Fatal]
  - Dyspnoea [Unknown]
  - Toxic epidermal necrolysis [Fatal]
  - Cholelithiasis [Fatal]
  - Hypertension [Unknown]

NARRATIVE: CASE EVENT DATE: 20010629
